FAERS Safety Report 17632101 (Version 1)
Quarter: 2020Q2

REPORT INFORMATION
  Report Type: Spontaneous
  Country: US (occurrence: US)
  Receive Date: 20200406
  Receipt Date: 20200406
  Transmission Date: 20200713
  Serious: No
  Sender: FDA-Public Use
  Company Number: US-FERRINGPH-2020FE00650

PATIENT
  Sex: Female

DRUGS (1)
  1. NOCDURNA [Suspect]
     Active Substance: DESMOPRESSIN ACETATE
     Indication: NOCTURIA
     Dosage: 27.7 UG
     Route: 048

REACTIONS (1)
  - Drug ineffective [Unknown]
